FAERS Safety Report 5124074-8 (Version None)
Quarter: 2006Q4

REPORT INFORMATION
  Report Type: 
  Country: None (occurrence: None)
  Receive Date: 20061010
  Receipt Date: 20051031
  Transmission Date: 20070319
  Serious: Yes (Hospitalization, Other)
  Sender: FDA-Public Use
  Company Number: US-BRISTOL-MYERS SQUIBB COMPANY-13162656

PATIENT
  Age: 76 Year
  Sex: Female
  Weight: 69 kg

DRUGS (7)
  1. AVAPRO [Suspect]
     Indication: HYPERTENSION
     Route: 048
     Dates: start: 20050905
  2. HYDROCHLOROTHIAZIDE [Concomitant]
  3. TOPROL-XL [Concomitant]
  4. ACIPHEX [Concomitant]
     Dosage: DURATION OF THERAPY:  3-4 YEARS
  5. ASPIRIN [Concomitant]
     Dates: start: 19900101
  6. MULTI-VITAMIN [Concomitant]
  7. XANAX [Concomitant]

REACTIONS (9)
  - ABDOMINAL DISTENSION [None]
  - ABNORMAL DREAMS [None]
  - DIZZINESS [None]
  - DRUG INEFFECTIVE [None]
  - FLATULENCE [None]
  - HEART RATE DECREASED [None]
  - MYOCARDIAL INFARCTION [None]
  - NIGHTMARE [None]
  - SLEEP DISORDER [None]
